FAERS Safety Report 20810817 (Version 2)
Quarter: 2022Q4

REPORT INFORMATION
  Report Type: Spontaneous
  Country: US (occurrence: US)
  Receive Date: 20220510
  Receipt Date: 20221129
  Transmission Date: 20230112
  Serious: No
  Sender: FDA-Public Use
  Company Number: US-PFIZER INC-202200633691

PATIENT
  Age: 76 Year
  Sex: Female

DRUGS (1)
  1. IBRANCE [Suspect]
     Active Substance: PALBOCICLIB
     Indication: Breast cancer female
     Dosage: 125 MG, CYCLIC (1 TAB DAILY FOR 21 DAYS FOLLOWED BY 7 DAYS OFF, THEN REPEAT)
     Route: 048
     Dates: start: 20220114

REACTIONS (3)
  - Constipation [Unknown]
  - Alopecia [Unknown]
  - Nausea [Not Recovered/Not Resolved]
